FAERS Safety Report 10073124 (Version 1)
Quarter: 2014Q2

REPORT INFORMATION
  Report Type: Spontaneous
  Country: PL (occurrence: PL)
  Receive Date: 20140411
  Receipt Date: 20140411
  Transmission Date: 20141212
  Serious: Yes (Other)
  Sender: FDA-Public Use
  Company Number: PL-BAYER-2014-050613

PATIENT
  Age: 54 Year
  Sex: Female
  Weight: 68 kg

DRUGS (1)
  1. GADOVIST [Suspect]
     Dosage: 6.5 ML, UNK
     Route: 042
     Dates: start: 20131025, end: 20131025

REACTIONS (2)
  - Bradycardia [Recovered/Resolved]
  - Blood pressure decreased [Recovered/Resolved]
